FAERS Safety Report 11458192 (Version 1)
Quarter: 2015Q3

REPORT INFORMATION
  Report Type: Spontaneous
  Country: US (occurrence: None)
  Receive Date: 20150903
  Receipt Date: 20150903
  Transmission Date: 20151125
  Serious: No
  Sender: FDA-Public Use
  Company Number: None

PATIENT
  Age: 46 Year
  Sex: Female
  Weight: 64.86 kg

DRUGS (3)
  1. LEVOFLOXACIN 750 MG DR. REDDY^S LAB [Suspect]
     Active Substance: LEVOFLOXACIN
     Indication: SINUSITIS
     Route: 048
     Dates: start: 20150826, end: 20150902
  2. VIVELLE [Concomitant]
     Active Substance: ESTRADIOL
  3. FLUOXETINE [Concomitant]
     Active Substance: FLUOXETINE\FLUOXETINE HYDROCHLORIDE

REACTIONS (4)
  - Pain in extremity [None]
  - Impaired work ability [None]
  - Musculoskeletal stiffness [None]
  - Pain [None]

NARRATIVE: CASE EVENT DATE: 20150831
